FAERS Safety Report 6148389-X (Version None)
Quarter: 2009Q2

REPORT INFORMATION
  Report Type: 
  Country: None (occurrence: None)
  Receive Date: 20090408
  Receipt Date: 20090327
  Transmission Date: 20091009
  Serious: Yes (Death, Life-Threatening)
  Sender: FDA-Public Use
  Company Number: SI-MEDIMMUNE-MEDI-0007679

PATIENT
  Sex: Female

DRUGS (10)
  1. SYNAGIS [Suspect]
     Indication: BRONCHOPULMONARY DYSPLASIA
     Route: 030
     Dates: start: 20081117, end: 20081217
  2. SYNAGIS [Suspect]
     Route: 030
     Dates: start: 20081117
  3. FUROSEMIDE [Concomitant]
     Indication: BRONCHOPULMONARY DYSPLASIA
     Route: 030
  4. FUROSEMIDE [Concomitant]
     Indication: PULMONARY HYPERTENSION
  5. SILDENAFIL CITRATE [Concomitant]
     Indication: BRONCHOPULMONARY DYSPLASIA
     Route: 048
  6. SILDENAFIL CITRATE [Concomitant]
     Indication: PULMONARY HYPERTENSION
  7. AZITHROMYCIN [Concomitant]
     Route: 048
  8. SPIRONOLACTONE [Concomitant]
     Route: 048
  9. VITOL [Concomitant]
     Route: 048
  10. CALCITRIOL [Concomitant]
     Route: 048

REACTIONS (4)
  - ANGIOPATHY [None]
  - BRADYCARDIA [None]
  - CARDIAC FAILURE [None]
  - CARDIAC FAILURE ACUTE [None]
